FAERS Safety Report 10146285 (Version 2)
Quarter: 2014Q2

REPORT INFORMATION
  Report Type: Spontaneous
  Country: FR (occurrence: FR)
  Receive Date: 20140501
  Receipt Date: 20140501
  Transmission Date: 20141212
  Serious: Yes (Hospitalization)
  Sender: FDA-Public Use
  Company Number: FR-SA-200910704FR

PATIENT
  Age: 75 Year
  Sex: Male

DRUGS (4)
  1. LASILIX [Suspect]
     Indication: HYPERTENSION
     Route: 048
  2. MONO-TILDIEM [Suspect]
     Indication: HYPERTENSION
     Dosage: DOSE UNIT: 200 MG
     Route: 048
  3. INIPOMP [Concomitant]
     Indication: DUODENITIS
     Dosage: DOSE UNIT: 40 MG
     Route: 048
  4. SIMVASTATIN [Concomitant]
     Indication: HYPERCHOLESTEROLAEMIA
     Dosage: DOSE UNIT: 40 MG
     Route: 048

REACTIONS (2)
  - Traumatic fracture [Recovering/Resolving]
  - Fall [Recovering/Resolving]
